FAERS Safety Report 22651215 (Version 1)
Quarter: 2023Q2

REPORT INFORMATION
  Report Type: Spontaneous
  Country: US (occurrence: US)
  Receive Date: 20230628
  Receipt Date: 20230628
  Transmission Date: 20230722
  Serious: No
  Sender: FDA-Public Use
  Company Number: US-TEVA-2023-US-2898735

PATIENT
  Sex: Female

DRUGS (5)
  1. GABAPENTIN [Suspect]
     Active Substance: GABAPENTIN
     Indication: Arthralgia
     Route: 065
     Dates: start: 2023
  2. GABAPENTIN [Suspect]
     Active Substance: GABAPENTIN
     Indication: Myalgia
  3. KEYTRUDA [Concomitant]
     Active Substance: PEMBROLIZUMAB
     Indication: Product used for unknown indication
     Route: 065
  4. LENVIMA [Concomitant]
     Active Substance: LENVATINIB
     Indication: Endometrial cancer
     Route: 065
     Dates: start: 20230421
  5. LENVIMA [Concomitant]
     Active Substance: LENVATINIB
     Route: 065
     Dates: start: 20230308

REACTIONS (3)
  - Drug ineffective for unapproved indication [Unknown]
  - Somnolence [Unknown]
  - Product prescribing issue [Unknown]

NARRATIVE: CASE EVENT DATE: 20230101
